FAERS Safety Report 6528727-6 (Version None)
Quarter: 2009Q4

REPORT INFORMATION
  Report Type: 
  Country: None (occurrence: None)
  Receive Date: 20091224
  Receipt Date: 20091221
  Transmission Date: 20100525
  Serious: Yes (Death, Congenital Anomaly)
  Sender: FDA-Public Use
  Company Number: 2009SP041247

PATIENT

DRUGS (2)
  1. FOLLISTIM [Suspect]
     Indication: INFERTILITY
     Dates: start: 20081001, end: 20081101
  2. OVIDREL [Suspect]
     Indication: INFERTILITY
     Dates: start: 20080601, end: 20081101

REACTIONS (4)
  - CONGENITAL ANOMALY [None]
  - INTRA-UTERINE DEATH [None]
  - MATERNAL DRUGS AFFECTING FOETUS [None]
  - TRISOMY 22 [None]
